FAERS Safety Report 9410663 (Version 3)
Quarter: 2013Q2

REPORT INFORMATION
  Report Type: Spontaneous
  Country: FR (occurrence: None)
  Receive Date: 20130402
  Receipt Date: 20130418
  Transmission Date: 20140414
  Serious: Yes (Hospitalization)
  Sender: FDA-Public Use
  Company Number: JPI-P-009958

PATIENT
  Age: 78 Year
  Sex: Female

DRUGS (9)
  1. XYREM [Suspect]
     Indication: CATAPLEXY
     Dosage: 4.5 GM (2.25 GM, 2 IN 1 D), ORAL
     Route: 048
     Dates: start: 20091105
  2. VENLAFAXINE [Suspect]
     Dates: start: 20070430
  3. APROVEL [Concomitant]
  4. CELIPROLOL [Concomitant]
  5. EURELIX [Concomitant]
  6. NITRENDIPINE [Concomitant]
  7. MODIODAL [Concomitant]
  8. FORLAX [Concomitant]
  9. DOLIPRANE (PARACETAMOL) [Concomitant]

REACTIONS (7)
  - Dry mouth [None]
  - Enuresis [None]
  - Product quality issue [None]
  - Fatigue [None]
  - Hallucination [None]
  - Delirium [None]
  - Feeling abnormal [None]
